FAERS Safety Report 6933751-5 (Version None)
Quarter: 2010Q3

REPORT INFORMATION
  Report Type: 
  Country: None (occurrence: None)
  Receive Date: 20100820
  Receipt Date: 20100810
  Transmission Date: 20110219
  Serious: Yes (Other)
  Sender: FDA-Public Use
  Company Number: US-PFIZER INC-2010101196

PATIENT
  Sex: Male

DRUGS (1)
  1. DILANTIN [Suspect]
     Dosage: UNK

REACTIONS (5)
  - BALANCE DISORDER [None]
  - DIZZINESS [None]
  - EYE MOVEMENT DISORDER [None]
  - HEADACHE [None]
  - VISION BLURRED [None]
